FAERS Safety Report 4945666-2 (Version None)
Quarter: 2006Q1

REPORT INFORMATION
  Report Type: 
  Country: None (occurrence: None)
  Receive Date: 20060316
  Receipt Date: 20060302
  Transmission Date: 20060701
  Serious: Yes (Death, Other)
  Sender: FDA-Public Use
  Company Number: PHEH2006US02897

PATIENT
  Age: 69 Year
  Sex: Male

DRUGS (6)
  1. ZOMETA [Suspect]
     Indication: METASTASES TO BONE
     Dosage: 4 MG, QMO
     Route: 042
     Dates: start: 20031130, end: 20040413
  2. LEUPROLIDE ACETATE [Concomitant]
     Indication: HORMONE REPLACEMENT THERAPY
     Dosage: 22.5 MG, Q3MO
     Dates: start: 20031215, end: 20040914
  3. ESTRAMUSTINE PHOSPHATE [Concomitant]
     Indication: CHEMOTHERAPY
     Dosage: 140280 UNK, UNK
     Route: 042
     Dates: start: 20040405, end: 20040615
  4. PACLITAXEL [Concomitant]
     Indication: CHEMOTHERAPY
     Dosage: 167 MG, UNK
     Dates: start: 20040405, end: 20040615
  5. CARBOPLATIN [Concomitant]
     Indication: CHEMOTHERAPY
     Dosage: 663 MG, UNK
     Dates: start: 20040405, end: 20040615
  6. MLN 2704 [Concomitant]
     Dosage: 168 MG/M2, UNK
     Dates: start: 20031203, end: 20040209

REACTIONS (3)
  - MALIGNANT NEOPLASM PROGRESSION [None]
  - OSTEONECROSIS [None]
  - RENAL FAILURE [None]
